FAERS Safety Report 6687489-2 (Version None)
Quarter: 2010Q2

REPORT INFORMATION
  Report Type: 
  Country: None (occurrence: None)
  Receive Date: 20100416
  Receipt Date: 20100416
  Transmission Date: 20101027
  Serious: Yes (Life-Threatening)
  Sender: FDA-Public Use
  Company Number: None

PATIENT
  Age: 38 Year
  Sex: Female
  Weight: 64.4108 kg

DRUGS (2)
  1. NECON 777 0.5 WATSON PHARMACEUTICALS [Suspect]
     Indication: CONTRACEPTION
     Dosage: 0.5 DAILY PO NEARLY 2 1/2 YEARS
     Route: 048
     Dates: start: 20071013, end: 20100327
  2. NECON 777 0.5 WATSON PHARMACEUTICALS [Suspect]
     Indication: MENSTRUATION IRREGULAR
     Dosage: 0.5 DAILY PO NEARLY 2 1/2 YEARS
     Route: 048
     Dates: start: 20071013, end: 20100327

REACTIONS (5)
  - ACUTE SINUSITIS [None]
  - ASTHENIA [None]
  - CHEST PAIN [None]
  - COUGH [None]
  - PULMONARY EMBOLISM [None]
